FAERS Safety Report 9279493 (Version 2)
Quarter: 2013Q3

REPORT INFORMATION
  Report Type: Report from Study
  Country: PT (occurrence: PT)
  Receive Date: 20130508
  Receipt Date: 20130822
  Transmission Date: 20140515
  Serious: Yes (Hospitalization)
  Sender: FDA-Public Use
  Company Number: PHHY2013PT037595

PATIENT
  Age: 40 Year
  Sex: Female

DRUGS (7)
  1. GILENYA [Suspect]
     Indication: MULTIPLE SCLEROSIS
     Dosage: 0.5 MG, QD
     Route: 048
     Dates: start: 20121213
  2. ALFUZOSINA [Concomitant]
  3. MAGNORAL [Concomitant]
  4. CIPRALEX                                /DEN/ [Concomitant]
  5. ATENOLOL [Concomitant]
  6. DIURETICS [Concomitant]
  7. TRI-NORMIN [Concomitant]

REACTIONS (4)
  - Arrhythmia [Recovered/Resolved]
  - Chest discomfort [Recovered/Resolved]
  - Blood potassium decreased [Recovered/Resolved]
  - Discomfort [Unknown]
